FAERS Safety Report 6178820-5 (Version None)
Quarter: 2009Q2

REPORT INFORMATION
  Report Type: 
  Country: None (occurrence: None)
  Receive Date: 20090504
  Receipt Date: 20090317
  Transmission Date: 20091009
  Serious: No
  Sender: FDA-Public Use
  Company Number: US-ALEXION-A200900218

PATIENT
  Sex: Male

DRUGS (14)
  1. SOLIRIS [Suspect]
     Indication: PAROXYSMAL NOCTURNAL HAEMOGLOBINURIA
     Dosage: 600 MG, QWK X4
     Route: 042
     Dates: start: 20070702, end: 20070723
  2. SOLIRIS [Suspect]
     Dosage: 900 MG, Q2WK
     Route: 042
     Dates: start: 20070730
  3. WARFARIN SODIUM [Concomitant]
  4. PREDNISONE [Concomitant]
  5. RAMIPRIL [Concomitant]
  6. FOLIC ACID [Concomitant]
  7. PRAVASTATIN [Concomitant]
  8. OMEPRAZOLE [Concomitant]
  9. CALCIUM [Concomitant]
  10. ASPIRIN [Concomitant]
  11. MULTIVITAMIN                       /00831701/ [Concomitant]
     Indication: CROHN'S DISEASE
     Dosage: 2400 MG, UNK
  12. MULTIVITAMIN                       /00831701/ [Concomitant]
     Dosage: 800 MG, UNK
     Dates: start: 20080101
  13. NORVASC [Concomitant]
     Dosage: 10 MG, QD
     Route: 048
  14. PROTONIX                           /01263201/ [Concomitant]
     Indication: GASTROOESOPHAGEAL REFLUX DISEASE
     Dosage: 40 MG, QD
     Route: 048

REACTIONS (8)
  - ABDOMINAL DISTENSION [None]
  - ABDOMINAL PAIN [None]
  - BACK PAIN [None]
  - CHROMATURIA [None]
  - DIARRHOEA [None]
  - FLATULENCE [None]
  - HAEMOGLOBIN DECREASED [None]
  - PYREXIA [None]
